FAERS Safety Report 8365876-4 (Version None)
Quarter: 2012Q2

REPORT INFORMATION
  Report Type: 
  Country: None (occurrence: None)
  Receive Date: 20120515
  Receipt Date: 20120503
  Transmission Date: 20120825
  Serious: Yes (Other)
  Sender: FDA-Public Use
  Company Number: FK201201321

PATIENT
  Age: 66 Year
  Sex: Male
  Weight: 78.6 kg

DRUGS (4)
  1. AVASTIN [Suspect]
     Indication: COLORECTAL CANCER
     Dates: start: 20111118, end: 20120313
  2. FLUOROURACIL [Suspect]
     Indication: COLORECTAL CANCER
     Dates: start: 20111118, end: 20120313
  3. LEUCOVORIN CALCIUM [Suspect]
     Indication: COLORECTAL CANCER
     Dates: start: 20111118, end: 20120313
  4. IRINOTECAN HCL [Suspect]
     Indication: COLORECTAL CANCER
     Dates: start: 20111118, end: 20120313

REACTIONS (3)
  - GASTROINTESTINAL OEDEMA [None]
  - INTESTINAL DILATATION [None]
  - INTESTINAL MUCOSAL HYPERTROPHY [None]
